FAERS Safety Report 4402692-X (Version None)
Quarter: 2004Q3

REPORT INFORMATION
  Report Type: 
  Country: None (occurrence: None)
  Receive Date: 20040715
  Receipt Date: 20040629
  Transmission Date: 20050211
  Serious: Yes (Hospitalization)
  Sender: FDA-Public Use
  Company Number: 200653

PATIENT
  Sex: Female

DRUGS (1)
  1. AVONEX [Suspect]
     Indication: MULTIPLE SCLEROSIS
     Dosage: 30 MCG QS IM
     Route: 030
     Dates: start: 20040101

REACTIONS (4)
  - FATIGUE [None]
  - IRRITABILITY [None]
  - PAIN IN EXTREMITY [None]
  - WEIGHT INCREASED [None]
